FAERS Safety Report 9263695 (Version 1)
Quarter: 2013Q2

REPORT INFORMATION
  Report Type: Spontaneous
  Country: JP (occurrence: JP)
  Receive Date: 20130430
  Receipt Date: 20130430
  Transmission Date: 20140414
  Serious: Yes (Hospitalization)
  Sender: FDA-Public Use
  Company Number: JP-B.I. PHARMACEUTICALS,INC./RIDGEFIELD-2013-BI-05604NB

PATIENT
  Age: 55 Year
  Sex: Female

DRUGS (3)
  1. TRAZENTA [Suspect]
     Indication: DIABETES MELLITUS
     Dosage: 5 MG
     Route: 048
     Dates: start: 20121012
  2. CRESTOR [Concomitant]
     Indication: HYPERLIPIDAEMIA
     Dosage: 5 MG
     Route: 048
  3. MICAMLO [Concomitant]
     Indication: HYPERTENSION
     Dosage: 40 MG
     Route: 048

REACTIONS (1)
  - Blood glucose increased [Not Recovered/Not Resolved]
